FAERS Safety Report 18527134 (Version 1)
Quarter: 2020Q4

REPORT INFORMATION
  Report Type: Report from Study
  Country: US (occurrence: US)
  Receive Date: 20201120
  Receipt Date: 20201120
  Transmission Date: 20210114
  Serious: Yes (Other)
  Sender: FDA-Public Use
  Company Number: US-SA-2020SA315416

PATIENT

DRUGS (12)
  1. MYCOPHENOLATE MOFETIL. [Suspect]
     Active Substance: MYCOPHENOLATE MOFETIL
     Indication: IMMUNOSUPPRESSANT DRUG THERAPY
     Dosage: 1200 MG/M2, QD
  2. TACROLIMUS. [Suspect]
     Active Substance: TACROLIMUS
     Dosage: GOAL TACROLIMUS LEVELS WERE 5-8 NG/ML LONG TERM
  3. ALEMTUZUMAB [Suspect]
     Active Substance: ALEMTUZUMAB
     Indication: IMMUNOSUPPRESSANT DRUG THERAPY
     Dosage: 0.3 MG/KG, 1X, UPTO 20 MG
     Route: 042
  4. VALGANCICLOVIR. [Concomitant]
     Active Substance: VALGANCICLOVIR
     Indication: ANTIVIRAL PROPHYLAXIS
  5. ATOVAQUONE. [Concomitant]
     Active Substance: ATOVAQUONE
     Indication: ANTIFUNGAL PROPHYLAXIS
  6. METHYLPREDNISOLONE. [Suspect]
     Active Substance: METHYLPREDNISOLONE
     Indication: IMMUNOSUPPRESSANT DRUG THERAPY
     Dosage: 300 MG/M2
     Route: 042
  7. METHYLPREDNISOLONE. [Suspect]
     Active Substance: METHYLPREDNISOLONE
     Dosage: 24 MG/M2, QD, ON DAY 3
     Route: 050
  8. METHYLPREDNISOLONE. [Suspect]
     Active Substance: METHYLPREDNISOLONE
     Dosage: 12 MG/M2, QD, ON DAYS 4 AND 5, DOSE WAS CONTINUED UNTIL A TROUGH TACROLIMUS LEVEL OF AT LEAST 5 NG/M
     Route: 050
  9. MYCOPHENOLATE MOFETIL. [Suspect]
     Active Substance: MYCOPHENOLATE MOFETIL
     Dosage: 900 MG/M2, QD
  10. METHYLPREDNISOLONE. [Suspect]
     Active Substance: METHYLPREDNISOLONE
     Dosage: 48 MG/M2, BID, ON DAY 1 POST-TRANSPLANT
     Route: 042
  11. METHYLPREDNISOLONE. [Suspect]
     Active Substance: METHYLPREDNISOLONE
     Dosage: 36 MG/M2, BID, ON DAY 2
     Route: 042
  12. TACROLIMUS. [Suspect]
     Active Substance: TACROLIMUS
     Indication: IMMUNOSUPPRESSANT DRUG THERAPY
     Dosage: GOAL TACROLIMUS LEVELS WERE 5-10 NG/ML FOR THE FIRST THREE MONTHS POST-TRANSPLANT

REACTIONS (3)
  - Transplant rejection [Recovered/Resolved]
  - Treatment noncompliance [Recovered/Resolved]
  - Off label use [Unknown]
